FAERS Safety Report 7775093-4 (Version None)
Quarter: 2011Q3

REPORT INFORMATION
  Report Type: 
  Country: None (occurrence: None)
  Receive Date: 20110923
  Receipt Date: 20110908
  Transmission Date: 20111222
  Serious: Yes (Other)
  Sender: FDA-Public Use
  Company Number: CH-WATSON-2011-15151

PATIENT
  Age: 68 Year
  Sex: Male

DRUGS (2)
  1. LAMOTRIGINE [Suspect]
     Indication: EPILEPSY
     Dosage: 25 MG, QPM ESCALATING 25 MG Q2WKS
  2. LAMOTRIGINE [Suspect]
     Dosage: 100 MG, UNK
     Dates: end: 20080501

REACTIONS (2)
  - CONDITION AGGRAVATED [None]
  - WITHDRAWAL SYNDROME [None]
